FAERS Safety Report 7911520-7 (Version None)
Quarter: 2011Q4

REPORT INFORMATION
  Report Type: 
  Country: None (occurrence: None)
  Receive Date: 20111114
  Receipt Date: 20111031
  Transmission Date: 20120403
  Serious: Yes (Life-Threatening)
  Sender: FDA-Public Use
  Company Number: JP-ELI_LILLY_AND_COMPANY-JP201111000030

PATIENT
  Age: 27 Year
  Sex: Male

DRUGS (7)
  1. RIZE [Concomitant]
  2. DOGMATIL [Concomitant]
  3. ZYPREXA [Suspect]
     Indication: SCHIZOPHRENIA
     Dosage: 10 MG, UNK
     Route: 048
  4. AKINETON [Concomitant]
  5. CLONAZEPAM [Concomitant]
  6. SERTRALINE HYDROCHLORIDE [Concomitant]
     Dosage: 50 MG, UNK
     Route: 048
  7. SERTRALINE HYDROCHLORIDE [Concomitant]
     Dosage: 100 MG, UNK
     Route: 048
     Dates: start: 20110101, end: 20111029

REACTIONS (1)
  - LOSS OF CONSCIOUSNESS [None]
